FAERS Safety Report 4414618-3 (Version None)
Quarter: 2004Q3

REPORT INFORMATION
  Report Type: 
  Country: None (occurrence: None)
  Receive Date: 20040729
  Receipt Date: 20040719
  Transmission Date: 20050211
  Serious: Yes (Hospitalization)
  Sender: FDA-Public Use
  Company Number: 2004CG01427

PATIENT
  Age: 52 Year
  Sex: Male
  Weight: 55 kg

DRUGS (2)
  1. OMEPRAZOLE [Suspect]
     Dosage: 20 MG DAILY PO
     Route: 048
     Dates: start: 20040401
  2. SUCRALFATE [Suspect]
     Dosage: 1 G TID PO
     Route: 048
     Dates: start: 20040401

REACTIONS (3)
  - HYPOKALAEMIA [None]
  - METABOLIC ALKALOSIS [None]
  - VOMITING [None]
